FAERS Safety Report 13964306 (Version 1)
Quarter: 2017Q3

REPORT INFORMATION
  Report Type: Spontaneous
  Country: US (occurrence: US)
  Receive Date: 20170913
  Receipt Date: 20170913
  Transmission Date: 20171128
  Serious: Yes (Other)
  Sender: FDA-Public Use
  Company Number: US-ASTRAZENECA-2017SE92986

PATIENT
  Sex: Female

DRUGS (1)
  1. NEXIUM 24HR [Suspect]
     Active Substance: ESOMEPRAZOLE MAGNESIUM
     Dosage: 1 DF, 2X/DAY  (TAKES 1  AFTER BREAKFAST AND 1 AT DINNER TIME PER HCP)
     Route: 048

REACTIONS (3)
  - Intentional product use issue [Unknown]
  - Gastric disorder [Unknown]
  - Lyme disease [Unknown]

NARRATIVE: CASE EVENT DATE: 201702
